FAERS Safety Report 12791589 (Version 2)
Quarter: 2017Q1

REPORT INFORMATION
  Report Type: Spontaneous
  Country: US (occurrence: US)
  Receive Date: 20160929
  Receipt Date: 20170104
  Transmission Date: 20170428
  Serious: Yes (Other)
  Sender: FDA-Public Use
  Company Number: US-SA-2016SA174587

PATIENT
  Age: 66 Year
  Sex: Female
  Weight: 108.86 kg

DRUGS (16)
  1. FUROSEMIDE. [Concomitant]
     Active Substance: FUROSEMIDE
  2. VOLTAREN [Concomitant]
     Active Substance: DICLOFENAC SODIUM
  3. NITROGLYCERINE [Concomitant]
     Active Substance: NITROGLYCERIN
  4. SIMVASTATIN. [Concomitant]
     Active Substance: SIMVASTATIN
  5. ASPIRIN. [Concomitant]
     Active Substance: ASPIRIN
  6. ALLOPURINOL. [Concomitant]
     Active Substance: ALLOPURINOL
  7. METOPROLOL. [Concomitant]
     Active Substance: METOPROLOL
  8. KLOR-CON [Concomitant]
     Active Substance: POTASSIUM CHLORIDE
  9. LANTUS SOLOSTAR [Suspect]
     Active Substance: INSULIN GLARGINE
     Indication: TYPE 2 DIABETES MELLITUS
     Dosage: DOSE:70 UNIT(S)
     Route: 065
     Dates: start: 1998
  10. NOVOLOG [Concomitant]
     Active Substance: INSULIN ASPART
  11. SOLOSTAR [Suspect]
     Active Substance: DEVICE
     Indication: TYPE 2 DIABETES MELLITUS
     Dates: start: 1998
  12. LOSARTAN. [Concomitant]
     Active Substance: LOSARTAN
  13. COLCHICINE. [Concomitant]
     Active Substance: COLCHICINE
     Dosage: WHEN ACTIVE; 1 DAILY X 3 DAYS
  14. ISOSORBIDE. [Concomitant]
     Active Substance: ISOSORBIDE
  15. MECLIZINE [Concomitant]
     Active Substance: MECLIZINE HYDROCHLORIDE
  16. METFORMIN [Concomitant]
     Active Substance: METFORMIN HYDROCHLORIDE

REACTIONS (7)
  - Fall [Unknown]
  - Haematoma [Unknown]
  - Blood glucose increased [Unknown]
  - Device issue [Unknown]
  - Arthropathy [Unknown]
  - Pulmonary embolism [Unknown]
  - Product use issue [Unknown]

NARRATIVE: CASE EVENT DATE: 2001
